FAERS Safety Report 9419640 (Version 1)
Quarter: 2013Q3

REPORT INFORMATION
  Report Type: Spontaneous
  Country: US (occurrence: None)
  Receive Date: 20130723
  Receipt Date: 20130723
  Transmission Date: 20140515
  Serious: Yes (Hospitalization)
  Sender: FDA-Public Use
  Company Number: SP06827

PATIENT
  Age: 62 Year
  Sex: Female

DRUGS (4)
  1. OSMOPREP [Suspect]
     Indication: COLONOSCOPY
     Route: 048
     Dates: start: 20130123, end: 20130123
  2. ACE INHIBITOR [Concomitant]
  3. DIURETIC [Concomitant]
  4. LIPITOR [Concomitant]

REACTIONS (1)
  - Renal failure acute [None]
